FAERS Safety Report 23706215 (Version 1)
Quarter: 2024Q2

REPORT INFORMATION
  Report Type: Spontaneous
  Country: US (occurrence: None)
  Receive Date: 20240403
  Receipt Date: 20240403
  Transmission Date: 20240716
  Serious: Yes (Other)
  Sender: FDA-Public Use
  Company Number: None

PATIENT
  Age: 51 Year
  Sex: Male
  Weight: 120.6 kg

DRUGS (6)
  1. SOGROYA [Suspect]
     Active Substance: SOMAPACITAN-BECO
     Indication: Blood growth hormone decreased
     Dosage: 1 INJECTION ONCE PER WEEK SUBCUTANEOUS ?
     Route: 058
     Dates: start: 20231215
  2. HYDROCORTISONE [Concomitant]
  3. Lethothroxine [Concomitant]
  4. TESTOSTERONE [Concomitant]
  5. CABERGOLINE [Concomitant]
  6. SOGROYA [Concomitant]
     Active Substance: SOMAPACITAN-BECO

REACTIONS (4)
  - Eye infection [None]
  - Corneal abrasion [None]
  - Injury corneal [None]
  - Dry eye [None]

NARRATIVE: CASE EVENT DATE: 20240401
